FAERS Safety Report 22987234 (Version 3)
Quarter: 2023Q4

REPORT INFORMATION
  Report Type: Spontaneous
  Country: CA (occurrence: CA)
  Receive Date: 20230926
  Receipt Date: 20231201
  Transmission Date: 20240110
  Serious: Yes (Other)
  Sender: FDA-Public Use
  Company Number: CA-SAMSUNG BIOEPIS-SB-2023-25481

PATIENT
  Sex: Female
  Weight: 2.73 kg

DRUGS (1)
  1. HADLIMA [Suspect]
     Active Substance: ADALIMUMAB-BWWD
     Indication: Inflammatory bowel disease
     Route: 064

REACTIONS (7)
  - Xerosis [Recovering/Resolving]
  - Erythema of eyelid [Unknown]
  - Rash pustular [Unknown]
  - Toxic skin eruption [Unknown]
  - Seborrhoeic dermatitis [Unknown]
  - Psoriasis [Unknown]
  - Foetal exposure during pregnancy [Unknown]
